FAERS Safety Report 7773856-2 (Version None)
Quarter: 2011Q3

REPORT INFORMATION
  Report Type: 
  Country: None (occurrence: None)
  Receive Date: 20110920
  Receipt Date: 20110913
  Transmission Date: 20111222
  Serious: Yes (Other)
  Sender: FDA-Public Use
  Company Number: 2011SP039074

PATIENT
  Age: 13 Year
  Sex: Male
  Weight: 64 kg

DRUGS (7)
  1. ATROPINE [Concomitant]
  2. ROCURONIUM BROMIDE [Suspect]
     Indication: NEUROMUSCULAR BLOCKING THERAPY
     Dosage: 50 MG; IV 10MG; IV
     Route: 042
     Dates: start: 20110808, end: 20110808
  3. ATARAX [Concomitant]
  4. PROPOFOL [Concomitant]
  5. FLURBIPROFEN [Concomitant]
  6. SEVOPRANE (SEVOFLURANE / 01071401/) [Suspect]
     Indication: MAINTENANCE OF ANAESTHESIA
     Dosage: 100 MG; INH
     Route: 055
     Dates: start: 20110808, end: 20110808
  7. LAUGHING GAS [Concomitant]

REACTIONS (4)
  - ANAPHYLACTOID REACTION [None]
  - TACHYCARDIA [None]
  - HYPERTHERMIA MALIGNANT [None]
  - BLOOD PRESSURE INCREASED [None]
